FAERS Safety Report 7604379-9 (Version None)
Quarter: 2011Q3

REPORT INFORMATION
  Report Type: 
  Country: None (occurrence: None)
  Receive Date: 20110712
  Receipt Date: 20110707
  Transmission Date: 20111222
  Serious: Yes (Other)
  Sender: FDA-Public Use
  Company Number: US-PFIZER INC-2011054226

PATIENT
  Sex: Male

DRUGS (1)
  1. CHANTIX [Suspect]
     Indication: SMOKING CESSATION THERAPY
     Dosage: UNK
     Dates: start: 20060501, end: 20080201

REACTIONS (6)
  - INJURY [None]
  - NIGHTMARE [None]
  - MOOD SWINGS [None]
  - DISTURBANCE IN ATTENTION [None]
  - SUICIDE ATTEMPT [None]
  - MENTAL DISORDER [None]
